FAERS Safety Report 4773407-0 (Version None)
Quarter: 2005Q3

REPORT INFORMATION
  Report Type: 
  Country: None (occurrence: None)
  Receive Date: 20050920
  Receipt Date: 20050913
  Transmission Date: 20060218
  Serious: Yes (Hospitalization, Other)
  Sender: FDA-Public Use
  Company Number: US-JNJFOC-20050306495

PATIENT
  Sex: Male
  Weight: 67.13 kg

DRUGS (8)
  1. REMICADE [Suspect]
     Route: 042
  2. REMICADE [Suspect]
     Route: 042
  3. REMICADE [Suspect]
     Route: 042
  4. REMICADE [Suspect]
     Route: 042
  5. REMICADE [Suspect]
     Route: 042
  6. BEXTRA [Concomitant]
  7. METHOTREXATE [Concomitant]
  8. FOLIC ACID [Concomitant]

REACTIONS (1)
  - HISTOPLASMOSIS [None]
